FAERS Safety Report 8426325-0 (Version None)
Quarter: 2012Q2

REPORT INFORMATION
  Report Type: 
  Country: None (occurrence: None)
  Receive Date: 20120611
  Receipt Date: 20120607
  Transmission Date: 20120825
  Serious: Yes (Other)
  Sender: FDA-Public Use
  Company Number: US-PFIZER INC-2012137732

PATIENT
  Sex: Male
  Weight: 104 kg

DRUGS (7)
  1. CELEBREX [Suspect]
     Indication: BACK PAIN
     Dosage: 200 MG, 2X/DAY
     Route: 048
     Dates: start: 20100101, end: 20100101
  2. CELEBREX [Suspect]
     Indication: MUSCLE STRAIN
  3. LAMICTAL [Concomitant]
     Indication: CONVULSION
     Dosage: UNK
  4. KLONOPIN [Concomitant]
     Indication: CONVULSION
     Dosage: 2 MG, UNK
  5. VIMPAT [Concomitant]
     Indication: CONVULSION
     Dosage: 100 MG, UNK
  6. PRAVACHOL [Concomitant]
     Dosage: 80 MG, UNK
  7. DEPAKOTE [Concomitant]
     Indication: CONVULSION
     Dosage: 500 MG, UNK

REACTIONS (5)
  - RASH [None]
  - RECTAL HAEMORRHAGE [None]
  - CEREBRAL HAEMORRHAGE [None]
  - DYSPNOEA [None]
  - PHARYNGEAL OEDEMA [None]
